FAERS Safety Report 5525878-X (Version None)
Quarter: 2007Q4

REPORT INFORMATION
  Report Type: 
  Country: None (occurrence: None)
  Receive Date: 20071126
  Receipt Date: 20071115
  Transmission Date: 20080405
  Serious: Yes (Other)
  Sender: FDA-Public Use
  Company Number: CN-ASTRAZENECA-2007AP07290

PATIENT
  Age: 26 Year
  Sex: Female
  Weight: 65 kg

DRUGS (2)
  1. PROPOFOL [Suspect]
     Dosage: 1.5 - 2.0MG/KG 100MG WITHIN 50 SEC'S
     Route: 042
  2. PROPOFOL [Suspect]
     Route: 042

REACTIONS (1)
  - RESPIRATORY ARREST [None]
